FAERS Safety Report 8774667 (Version 2)
Quarter: 2013Q1

REPORT INFORMATION
  Report Type: Spontaneous
  Country: US (occurrence: US)
  Receive Date: 20120907
  Receipt Date: 20130111
  Transmission Date: 20140127
  Serious: No
  Sender: FDA-Public Use
  Company Number: US-009507513-1208USA012296

PATIENT
  Age: 44 None
  Sex: Female

DRUGS (6)
  1. JANUMET [Suspect]
     Indication: TYPE 2 DIABETES MELLITUS
     Dosage: 50/1000 MG ON 3 SEPARATE OCCASIONS
     Route: 048
     Dates: start: 20120808, end: 20120827
  2. JANUMET [Suspect]
     Dosage: 50/500 MG
     Route: 048
     Dates: start: 200908, end: 20120807
  3. JANUMET [Suspect]
     Dosage: SPLIT THE 50MG/1000MG TABLET TO OBTAIN HER ORIGINAL 50MG/500MG DOSAGE
     Route: 048
     Dates: start: 201208, end: 201208
  4. JANUMET [Suspect]
     Dosage: 50/500 MG
     Route: 048
     Dates: start: 20120828
  5. LISINOPRIL [Concomitant]
  6. GLIMEPIRIDE [Concomitant]

REACTIONS (3)
  - Migraine [Recovered/Resolved]
  - Diarrhoea [Recovered/Resolved]
  - Wrong technique in drug usage process [Unknown]
